FAERS Safety Report 4549710-6 (Version None)
Quarter: 2005Q1

REPORT INFORMATION
  Report Type: 
  Country: None (occurrence: None)
  Receive Date: 20050110
  Receipt Date: 20041229
  Transmission Date: 20050727
  Serious: Yes (Other)
  Sender: FDA-Public Use
  Company Number: 2004087187

PATIENT
  Age: 59 Year
  Sex: Female

DRUGS (18)
  1. DOXYCYCLINE [Suspect]
     Indication: LYME DISEASE
     Dosage: SEE IMAGE, ORAL
     Route: 048
     Dates: start: 20041001, end: 20041001
  2. DOXYCYCLINE [Suspect]
     Indication: MALAISE
     Dosage: SEE IMAGE, ORAL
     Route: 048
     Dates: start: 20041001, end: 20041001
  3. DOXYCYCLINE [Suspect]
     Indication: MYALGIA
     Dosage: SEE IMAGE, ORAL
     Route: 048
     Dates: start: 20041001, end: 20041001
  4. DOXYCYCLINE [Suspect]
     Indication: NECK PAIN
     Dosage: SEE IMAGE, ORAL
     Route: 048
     Dates: start: 20041001, end: 20041001
  5. DOXYCYCLINE [Suspect]
     Indication: NEUROLOGICAL SYMPTOM
     Dosage: SEE IMAGE, ORAL
     Route: 048
     Dates: start: 20041001, end: 20041001
  6. DOXYCYCLINE [Suspect]
     Indication: PYREXIA
     Dosage: SEE IMAGE, ORAL
     Route: 048
     Dates: start: 20041001, end: 20041001
  7. DOXYCYCLINE [Suspect]
     Indication: LYME DISEASE
     Dosage: SEE IMAGE, ORAL
     Route: 048
     Dates: start: 20041022, end: 20041001
  8. DOXYCYCLINE [Suspect]
     Indication: MALAISE
     Dosage: SEE IMAGE, ORAL
     Route: 048
     Dates: start: 20041022, end: 20041001
  9. DOXYCYCLINE [Suspect]
     Indication: MYALGIA
     Dosage: SEE IMAGE, ORAL
     Route: 048
     Dates: start: 20041022, end: 20041001
  10. DOXYCYCLINE [Suspect]
     Indication: NECK PAIN
     Dosage: SEE IMAGE, ORAL
     Route: 048
     Dates: start: 20041022, end: 20041001
  11. DOXYCYCLINE [Suspect]
     Indication: NEUROLOGICAL SYMPTOM
     Dosage: SEE IMAGE, ORAL
     Route: 048
     Dates: start: 20041022, end: 20041001
  12. DOXYCYCLINE [Suspect]
     Indication: PYREXIA
     Dosage: SEE IMAGE, ORAL
     Route: 048
     Dates: start: 20041022, end: 20041001
  13. DOXYCYCLINE [Suspect]
     Indication: LYME DISEASE
     Dosage: SEE IMAGE, ORAL
     Route: 048
     Dates: start: 19990101
  14. DOXYCYCLINE [Suspect]
     Indication: MALAISE
     Dosage: SEE IMAGE, ORAL
     Route: 048
     Dates: start: 19990101
  15. DOXYCYCLINE [Suspect]
     Indication: MYALGIA
     Dosage: SEE IMAGE, ORAL
     Route: 048
     Dates: start: 19990101
  16. DOXYCYCLINE [Suspect]
     Indication: NECK PAIN
     Dosage: SEE IMAGE, ORAL
     Route: 048
     Dates: start: 19990101
  17. DOXYCYCLINE [Suspect]
     Indication: NEUROLOGICAL SYMPTOM
     Dosage: SEE IMAGE, ORAL
     Route: 048
     Dates: start: 19990101
  18. DOXYCYCLINE [Suspect]
     Indication: PYREXIA
     Dosage: SEE IMAGE, ORAL
     Route: 048
     Dates: start: 19990101

REACTIONS (8)
  - ABDOMINAL PAIN UPPER [None]
  - ANOREXIA [None]
  - CONSTIPATION [None]
  - INFLUENZA [None]
  - MALAISE [None]
  - MYALGIA [None]
  - NAUSEA [None]
  - NECK PAIN [None]
